FAERS Safety Report 21539129 (Version 1)
Quarter: 2022Q4

REPORT INFORMATION
  Report Type: Report from Study
  Country: US (occurrence: US)
  Receive Date: 20221102
  Receipt Date: 20221102
  Transmission Date: 20230113
  Serious: Yes (Hospitalization, Other)
  Sender: FDA-Public Use
  Company Number: US-BAUSCH-BL-2022-024577

PATIENT
  Age: 59 Year
  Sex: Male

DRUGS (1)
  1. XIFAXAN [Suspect]
     Active Substance: RIFAXIMIN
     Indication: Hepatic encephalopathy
     Route: 048

REACTIONS (4)
  - Blood potassium increased [Recovered/Resolved]
  - Sepsis [Not Recovered/Not Resolved]
  - Neuritis [Not Recovered/Not Resolved]
  - Ascites [Unknown]

NARRATIVE: CASE EVENT DATE: 20221001
